FAERS Safety Report 14141133 (Version 2)
Quarter: 2017Q4

REPORT INFORMATION
  Report Type: Spontaneous
  Country: JP (occurrence: JP)
  Receive Date: 20171030
  Receipt Date: 20171110
  Transmission Date: 20180321
  Serious: Yes (Other)
  Sender: FDA-Public Use
  Company Number: PHJP2017JP032114

PATIENT
  Age: 55 Year
  Sex: Male

DRUGS (3)
  1. LDK378 [Suspect]
     Active Substance: CERITINIB
     Dosage: 600 MG, UNK
     Route: 065
  2. LDK378 [Suspect]
     Active Substance: CERITINIB
     Dosage: 450 MG, UNK
     Route: 065
  3. LDK378 [Suspect]
     Active Substance: CERITINIB
     Indication: NON-SMALL CELL LUNG CANCER
     Dosage: 750 MG, UNK
     Route: 065

REACTIONS (6)
  - Splenic rupture [Unknown]
  - Abdominal discomfort [Unknown]
  - Cholecystitis [Recovered/Resolved]
  - Haemorrhage [Unknown]
  - Metastases to liver [Recovered/Resolved]
  - Malignant neoplasm progression [Recovered/Resolved]
